FAERS Safety Report 16756328 (Version 1)
Quarter: 2019Q3

REPORT INFORMATION
  Report Type: Spontaneous
  Country: FR (occurrence: FR)
  Receive Date: 20190829
  Receipt Date: 20190829
  Transmission Date: 20191005
  Serious: Yes (Hospitalization)
  Sender: FDA-Public Use
  Company Number: FR-CELGENEUS-FRA-20190809152

PATIENT
  Age: 57 Year
  Sex: Male
  Weight: 94 kg

DRUGS (16)
  1. JANUVIA [Concomitant]
     Active Substance: SITAGLIPTIN PHOSPHATE
     Indication: DIABETES MELLITUS
     Dosage: 50 MILLIGRAM
     Route: 048
     Dates: start: 201904
  2. ZELITREX [Concomitant]
     Active Substance: VALACYCLOVIR HYDROCHLORIDE
     Indication: PROPHYLAXIS
     Dosage: 500 MILLIGRAM
     Route: 048
     Dates: start: 20190411
  3. DEXAMETHASONE. [Concomitant]
     Active Substance: DEXAMETHASONE
     Indication: PLASMA CELL MYELOMA
     Dosage: 40 MILLIGRAM
     Route: 048
     Dates: start: 20190411
  4. LERCAN [Concomitant]
     Active Substance: LERCANIDIPINE
     Indication: PRODUCT USED FOR UNKNOWN INDICATION
     Dosage: 20 MILLIGRAM
     Route: 048
  5. REVLIMID [Suspect]
     Active Substance: LENALIDOMIDE
     Indication: PLASMA CELL MYELOMA
     Dosage: 10 MILLIGRAM
     Route: 048
     Dates: start: 20190411
  6. BACTRIM [Concomitant]
     Active Substance: SULFAMETHOXAZOLE\TRIMETHOPRIM
     Indication: PROPHYLAXIS
     Route: 048
     Dates: start: 20190411
  7. TAHOR [Concomitant]
     Active Substance: ATORVASTATIN CALCIUM
     Indication: PRODUCT USED FOR UNKNOWN INDICATION
     Dosage: 20 MILLIGRAM
     Route: 048
  8. CALCIPARINE [Concomitant]
     Active Substance: HEPARIN CALCIUM
     Indication: PROPHYLAXIS
     Dosage: .4 MILLILITER
     Route: 058
     Dates: start: 20190411
  9. ABASAGLAR [Concomitant]
     Active Substance: INSULIN GLARGINE
     Indication: DIABETES MELLITUS
     Route: 058
     Dates: start: 201904
  10. SPECIAFOLDINE [Concomitant]
     Active Substance: FOLIC ACID
     Indication: ANAEMIA FOLATE DEFICIENCY
     Dosage: 10 MILLIGRAM
     Route: 048
     Dates: start: 20190411
  11. BISOPROLOL [Concomitant]
     Active Substance: BISOPROLOL
     Indication: PRODUCT USED FOR UNKNOWN INDICATION
     Dosage: 1.25 MILLIGRAM
     Route: 048
  12. PAMIDRONATE DE SODIUM HOSPIRA [Concomitant]
     Indication: PLASMA CELL MYELOMA
     Dosage: .0476 DOSAGE FORMS
     Route: 042
     Dates: start: 20190411
  13. EUPRESSYL [Concomitant]
     Active Substance: URAPIDIL
     Indication: PRODUCT USED FOR UNKNOWN INDICATION
     Dosage: 180 MILLIGRAM
     Route: 048
  14. KARDEGIC [Concomitant]
     Active Substance: ASPIRIN DL-LYSINE
     Indication: PRODUCT USED FOR UNKNOWN INDICATION
     Dosage: 75 MILLIGRAM
     Route: 049
  15. NINLARO [Concomitant]
     Active Substance: IXAZOMIB CITRATE
     Indication: PLASMA CELL MYELOMA
     Route: 048
     Dates: start: 20190411
  16. DARZALEX [Concomitant]
     Active Substance: DARATUMUMAB
     Indication: PLASMA CELL MYELOMA
     Route: 042
     Dates: start: 20190411

REACTIONS (1)
  - Hypertriglyceridaemia [Not Recovered/Not Resolved]

NARRATIVE: CASE EVENT DATE: 201908
